FAERS Safety Report 14318604 (Version 1)
Quarter: 2017Q4

REPORT INFORMATION
  Report Type: Report from Study
  Country: IN (occurrence: IN)
  Receive Date: 20171222
  Receipt Date: 20171222
  Transmission Date: 20180321
  Serious: Yes (Death, Other)
  Sender: FDA-Public Use
  Company Number: IN-MYLANLABS-2017M1078525

PATIENT
  Age: 59 Year
  Sex: Female

DRUGS (3)
  1. BORTEZOMIB [Suspect]
     Active Substance: BORTEZOMIB
     Indication: MYELOMA CAST NEPHROPATHY
     Dosage: 1.3MG/M2 ON DAY 1, 8, 15, 22 AS A PART OF VDT REGIMEN
     Route: 058
  2. THALIDOMIDE [Suspect]
     Active Substance: THALIDOMIDE
     Indication: MYELOMA CAST NEPHROPATHY
     Dosage: DAILY AS A PART OF VDT REGIMEN
     Route: 048
  3. DEXAMETHASONE. [Suspect]
     Active Substance: DEXAMETHASONE
     Indication: MYELOMA CAST NEPHROPATHY
     Dosage: 40MG ON DAYS 1-4, 9-12, 17-20 AND 25-28 AS A PART OF VDT REGIMEN
     Route: 048

REACTIONS (2)
  - Sepsis [Fatal]
  - Pneumonia [Fatal]
